FAERS Safety Report 16902760 (Version 2)
Quarter: 2019Q4

REPORT INFORMATION
  Report Type: Spontaneous
  Country: US (occurrence: US)
  Receive Date: 20191010
  Receipt Date: 20191024
  Transmission Date: 20200122
  Serious: No
  Sender: FDA-Public Use
  Company Number: US-BAYER-2019-183327

PATIENT
  Age: 91 Year
  Sex: Female
  Weight: 68 kg

DRUGS (2)
  1. FENTANYL TRANSDERMAL SYSTEM [Concomitant]
     Active Substance: FENTANYL
     Dosage: UNK
  2. MIRALAX [Suspect]
     Active Substance: POLYETHYLENE GLYCOL 3350
     Indication: GASTROINTESTINAL DISORDER
     Dosage: 17 G, BID
     Route: 048
     Dates: start: 201901

REACTIONS (2)
  - Extra dose administered [None]
  - Diarrhoea [Unknown]

NARRATIVE: CASE EVENT DATE: 201910
